FAERS Safety Report 5092310-2 (Version None)
Quarter: 2006Q3

REPORT INFORMATION
  Report Type: 
  Country: None (occurrence: None)
  Receive Date: 20060825
  Receipt Date: 20060809
  Transmission Date: 20061208
  Serious: Yes (Hospitalization, Other)
  Sender: FDA-Public Use
  Company Number: US200608001521

PATIENT
  Age: 59 Year
  Sex: Male

DRUGS (28)
  1. CIALIS [Suspect]
  2. BACLOFEN [Concomitant]
  3. KLONOPIN [Concomitant]
  4. AMBIEN [Concomitant]
  5. LEXAPRO /USA/ (ESCITALOPRAM) [Concomitant]
  6. LORATADINE [Concomitant]
  7. MS CONTIN [Concomitant]
  8. NEURONTIN [Concomitant]
  9. NORTRIPTYLINE HCL [Concomitant]
  10. BYETTA (EXENATIDE) PEN, DISPOSABLE [Concomitant]
  11. XANAX /USA/ (ALPRAZOLAM) [Concomitant]
  12. DDAVP [Concomitant]
  13. FLOMAX [Concomitant]
  14. FOLATE SODIUM (FOLATE SODIUM) [Concomitant]
  15. FOSAMAX /ITA/ (ALENDRONATE SODIUM) [Concomitant]
  16. GLUCOPHAGE [Concomitant]
  17. METHOTREXATE [Concomitant]
  18. MIRALAX [Concomitant]
  19. NASONEX [Concomitant]
  20. TRICOR [Concomitant]
  21. URECHOLINE [Concomitant]
  22. ATROVENT [Concomitant]
  23. ASPIRIN [Concomitant]
  24. ADVAIR DISKUS 100/50 [Concomitant]
  25. MAXALT [Concomitant]
  26. TUMS (CALCIUM CARBONATE) [Concomitant]
  27. NITROSTAT [Concomitant]
  28. ZOFRAN [Concomitant]

REACTIONS (9)
  - COGNITIVE DISORDER [None]
  - DISTURBANCE IN ATTENTION [None]
  - FALL [None]
  - HALLUCINATION [None]
  - METABOLIC ENCEPHALOPATHY [None]
  - PSYCHOMOTOR RETARDATION [None]
  - SOMNOLENCE [None]
  - TIBIA FRACTURE [None]
  - TOXIC INDUCED ENCEPHALOPATHY [None]
